FAERS Safety Report 26126275 (Version 2)
Quarter: 2025Q4

REPORT INFORMATION
  Report Type: Spontaneous
  Country: JP (occurrence: JP)
  Receive Date: 20251205
  Receipt Date: 20251229
  Transmission Date: 20260118
  Serious: No
  Sender: MYLAN
  Company Number: JP-MYLANLABS-2025M1103237

PATIENT

DRUGS (1)
  1. EPIPEN [Suspect]
     Active Substance: EPINEPHRINE
     Indication: Product used for unknown indication

REACTIONS (2)
  - Product storage error [Unknown]
  - Liquid product physical issue [Unknown]
